FAERS Safety Report 9514538 (Version 2)
Quarter: 2013Q3

REPORT INFORMATION
  Report Type: Spontaneous
  Country: IE (occurrence: IE)
  Receive Date: 20130911
  Receipt Date: 20130911
  Transmission Date: 20140515
  Serious: Yes (Disabling)
  Sender: FDA-Public Use
  Company Number: IE-BRISTOL-MYERS SQUIBB COMPANY-19048032

PATIENT
  Age: 33 Year
  Sex: Female

DRUGS (1)
  1. GLUCOPHAGE TABS 500 MG [Suspect]
     Indication: INSULIN RESISTANCE
     Dosage: LAST DOSE: 29JUN13
     Route: 048
     Dates: start: 20130420, end: 20130629

REACTIONS (1)
  - Lip swelling [Not Recovered/Not Resolved]
